FAERS Safety Report 6988704-8 (Version None)
Quarter: 2010Q3

REPORT INFORMATION
  Report Type: 
  Country: None (occurrence: None)
  Receive Date: 20100916
  Receipt Date: 20100903
  Transmission Date: 20110219
  Serious: Yes (Other)
  Sender: FDA-Public Use
  Company Number: PHHY2010US59026

PATIENT
  Sex: Female

DRUGS (9)
  1. ZOMETA [Suspect]
     Dosage: UNK
  2. THALOMID [Suspect]
     Indication: MULTIPLE MYELOMA
     Dosage: 100 MG, QD
     Route: 048
     Dates: start: 20080409
  3. THALOMID [Suspect]
     Dosage: UNK
     Route: 048
     Dates: start: 20060401
  4. THALOMID [Suspect]
     Dosage: 150 MG, QD
     Route: 048
     Dates: start: 20061121
  5. COUMADIN [Concomitant]
     Indication: CENTRAL VENOUS CATHETERISATION
     Dosage: 1 MG, QD
     Route: 048
  6. LORAZEPAM [Concomitant]
     Indication: ANXIETY
     Dosage: 0.25 MG, BID
     Route: 048
  7. LORTAB [Concomitant]
     Indication: PAIN
     Dosage: 750 MG, (Q6HR PRN)
  8. LORTAB [Concomitant]
     Indication: NEPHROLITHIASIS
  9. ALBUTEROL [Concomitant]
     Dosage: 2 PUFFS, 4 TIMES A DAY

REACTIONS (6)
  - MASTOIDITIS [None]
  - MUSCLE SPASMS [None]
  - NEUROPATHY PERIPHERAL [None]
  - OSTEONECROSIS [None]
  - PARAESTHESIA [None]
  - TOOTH FRACTURE [None]
